FAERS Safety Report 15742535 (Version 1)
Quarter: 2018Q4

REPORT INFORMATION
  Report Type: Spontaneous
  Country: IT (occurrence: IT)
  Receive Date: 20181219
  Receipt Date: 20181219
  Transmission Date: 20190205
  Serious: Yes (Hospitalization)
  Sender: FDA-Public Use
  Company Number: PHHY2018IT152688

PATIENT
  Age: 78 Year
  Sex: Female

DRUGS (9)
  1. TACHIFENE [Suspect]
     Active Substance: ACETAMINOPHEN\IBUPROFEN
     Indication: INTENTIONAL OVERDOSE
     Dosage: 2 ?G/L, UNK
     Route: 048
  2. RIVOTRIL [Suspect]
     Active Substance: CLONAZEPAM
     Indication: INTENTIONAL OVERDOSE
     Dosage: 2 DF, UNK(TOTAL)
     Route: 048
  3. RAMIPRIL. [Suspect]
     Active Substance: RAMIPRIL
     Indication: INTENTIONAL OVERDOSE
     Dosage: 15 MG, UNK(TOTAL)
     Route: 065
  4. PAROXETINE. [Suspect]
     Active Substance: PAROXETINE
     Indication: INTENTIONAL OVERDOSE
     Dosage: 40 MG, UNK (TOTAL)
     Route: 048
  5. CLONAZEPAM. [Suspect]
     Active Substance: CLONAZEPAM
     Indication: INTENTIONAL OVERDOSE
     Dosage: 2 DF, UNK 1X
     Route: 048
  6. OMEPRAZEN [Suspect]
     Active Substance: OMEPRAZOLE
     Indication: INTENTIONAL OVERDOSE
     Dosage: 4 ?G/L, UNK
     Route: 048
  7. OMEPRAZOLE. [Suspect]
     Active Substance: OMEPRAZOLE
     Indication: INTENTIONAL OVERDOSE
     Dosage: 4 DF, UNK
     Route: 048
  8. PARACETAMOL [Suspect]
     Active Substance: ACETAMINOPHEN
     Indication: PRODUCT USED FOR UNKNOWN INDICATION
     Dosage: 2 DF, UNK 1X
     Route: 048
  9. IBUPROFEN. [Suspect]
     Active Substance: IBUPROFEN
     Indication: PRODUCT USED FOR UNKNOWN INDICATION
     Dosage: 2 DF, UNK (1X)
     Route: 048

REACTIONS (2)
  - Intentional overdose [Unknown]
  - Hypotension [Recovered/Resolved]

NARRATIVE: CASE EVENT DATE: 20181026
